FAERS Safety Report 9527211 (Version 1)
Quarter: 2013Q3

REPORT INFORMATION
  Report Type: Spontaneous
  Country: US (occurrence: US)
  Receive Date: 20130917
  Receipt Date: 20130917
  Transmission Date: 20140515
  Serious: Yes (Other)
  Sender: FDA-Public Use
  Company Number: US-RANBAXY-2013US-73167

PATIENT
  Age: 31 Year
  Sex: Female

DRUGS (1)
  1. ABSORICA [Suspect]
     Indication: PRODUCT USED FOR UNKNOWN INDICATION
     Dosage: 40 MG, QD
     Route: 065

REACTIONS (2)
  - Blood pressure increased [Unknown]
  - Migraine [Unknown]
